FAERS Safety Report 8033171-9 (Version None)
Quarter: 2012Q1

REPORT INFORMATION
  Report Type: 
  Country: None (occurrence: None)
  Receive Date: 20120110
  Receipt Date: 20120110
  Transmission Date: 20120608
  Serious: Yes (Other)
  Sender: FDA-Public Use
  Company Number: None

PATIENT
  Sex: Male

DRUGS (1)
  1. ALBUTEROL SULFATE AUTOHALER [Suspect]
     Indication: ASTHMA
     Dosage: 0.5CC
     Route: 055
     Dates: start: 20120107, end: 20120108

REACTIONS (3)
  - COUGH [None]
  - PRODUCT ODOUR ABNORMAL [None]
  - FEELING ABNORMAL [None]
